FAERS Safety Report 13707709 (Version 1)
Quarter: 2017Q2

REPORT INFORMATION
  Report Type: Spontaneous
  Country: US (occurrence: US)
  Receive Date: 20170630
  Receipt Date: 20170630
  Transmission Date: 20170830
  Serious: No
  Sender: FDA-Public Use
  Company Number: US-ASTRAZENECA-2014SE51094

PATIENT
  Age: 623 Month
  Sex: Male
  Weight: 140.6 kg

DRUGS (8)
  1. HYDROCHLOROTHIAZIDE. [Concomitant]
     Active Substance: HYDROCHLOROTHIAZIDE
  2. BYDUREON [Suspect]
     Active Substance: EXENATIDE
     Indication: TYPE 2 DIABETES MELLITUS
     Route: 058
  3. LOSARTAN. [Concomitant]
     Active Substance: LOSARTAN
  4. VITAMIN C [Concomitant]
     Active Substance: ASCORBIC ACID
  5. ASPIRIN. [Concomitant]
     Active Substance: ASPIRIN
  6. LANTUS [Concomitant]
     Active Substance: INSULIN GLARGINE
  7. BYDUREON [Suspect]
     Active Substance: EXENATIDE
     Indication: TYPE 2 DIABETES MELLITUS
     Route: 058
     Dates: start: 201406, end: 2014
  8. METFORMIN [Concomitant]
     Active Substance: METFORMIN HYDROCHLORIDE

REACTIONS (6)
  - Muscle spasms [Unknown]
  - Vomiting [Unknown]
  - Weight decreased [Unknown]
  - Blood pressure decreased [Unknown]
  - Drug hypersensitivity [Unknown]
  - Chills [Unknown]

NARRATIVE: CASE EVENT DATE: 201406
